FAERS Safety Report 9650658 (Version 1)
Quarter: 2013Q4

REPORT INFORMATION
  Report Type: Spontaneous
  Country: US (occurrence: US)
  Receive Date: 20131029
  Receipt Date: 20131029
  Transmission Date: 20140711
  Serious: No
  Sender: FDA-Public Use
  Company Number: US-B.I. PHARMACEUTICALS,INC./RIDGEFIELD-2013-BI-33072BP

PATIENT
  Age: 41 Year
  Sex: Female

DRUGS (5)
  1. SPIRIVA [Suspect]
     Dosage: 18 MCG
     Route: 055
     Dates: start: 201309, end: 201310
  2. LEVOXYL [Concomitant]
     Route: 048
  3. ADVAIR [Concomitant]
     Route: 055
  4. ALBUTEROL [Concomitant]
     Route: 055
  5. NASONEX [Concomitant]
     Route: 045

REACTIONS (1)
  - Panic attack [Unknown]
